FAERS Safety Report 4545733-1 (Version None)
Quarter: 2005Q1

REPORT INFORMATION
  Report Type: 
  Country: None (occurrence: None)
  Receive Date: 20050103
  Receipt Date: 20041213
  Transmission Date: 20050727
  Serious: Yes (Hospitalization)
  Sender: FDA-Public Use
  Company Number: USA041285603

PATIENT
  Age: 77 Year
  Sex: Female
  Weight: 53 kg

DRUGS (4)
  1. CYMBALTA [Suspect]
     Indication: MAJOR DEPRESSION
     Dosage: 30 MG
     Dates: start: 20041011, end: 20041120
  2. ATIVAN [Concomitant]
  3. NORVASC [Concomitant]
  4. SPIRONOLACTONE [Concomitant]

REACTIONS (1)
  - RENAL FAILURE ACUTE [None]
